FAERS Safety Report 5800475-7 (Version None)
Quarter: 2008Q3

REPORT INFORMATION
  Report Type: 
  Country: None (occurrence: None)
  Receive Date: 20080703
  Receipt Date: 20080627
  Transmission Date: 20090109
  Serious: Yes (Other)
  Sender: FDA-Public Use
  Company Number: A0735169A

PATIENT
  Age: 75 Year
  Sex: Female

DRUGS (7)
  1. LOVAZA [Suspect]
     Indication: BLOOD TRIGLYCERIDES INCREASED
     Dosage: 1CAP TWICE PER DAY
     Route: 048
     Dates: start: 20070101
  2. LISINOPRIL [Concomitant]
  3. AMARYL [Concomitant]
  4. TRIMETHOPRIM [Concomitant]
  5. ALLERGY SHOT [Concomitant]
  6. CRESTOR [Concomitant]
  7. ZYRTEC [Concomitant]

REACTIONS (2)
  - CHOKING [None]
  - VOMITING [None]
